FAERS Safety Report 18222368 (Version 1)
Quarter: 2020Q3

REPORT INFORMATION
  Report Type: Spontaneous
  Country: US (occurrence: US)
  Receive Date: 20200901
  Receipt Date: 20200901
  Transmission Date: 20201103
  Serious: Yes (Hospitalization)
  Sender: FDA-Public Use
  Company Number: None

PATIENT
  Age: 60 Year
  Sex: Male

DRUGS (14)
  1. TACROLIMUS 1MG CAP [Suspect]
     Active Substance: TACROLIMUS
     Indication: RENAL TRANSPLANT
     Dosage: ?          OTHER DOSE:4?3 CAPS;OTHER FREQUENCY:QAM?QPM;?
     Route: 048
     Dates: start: 20200115
  2. AMLODIPINE [Concomitant]
     Active Substance: AMLODIPINE BESYLATE
  3. MYFORTIC [Concomitant]
     Active Substance: MYCOPHENOLATE SODIUM
  4. LANTUS SOLOS [Concomitant]
  5. MYCOPHENOLIC 360MG DR TAB [Suspect]
     Active Substance: MYCOPHENOLIC ACID
     Indication: RENAL TRANSPLANT
     Route: 048
     Dates: start: 20200115
  6. ASPIRIN EC [Concomitant]
     Active Substance: ASPIRIN
  7. LOSARTAN POT [Concomitant]
     Active Substance: LOSARTAN POTASSIUM
  8. EASYMAX L [Concomitant]
  9. FLONASE ALGY [Concomitant]
  10. ISOSORB MONO [Concomitant]
     Active Substance: ISOSORBIDE MONONITRATE
  11. PRAVASTATIN. [Concomitant]
     Active Substance: PRAVASTATIN
  12. RANITIDINE. [Concomitant]
     Active Substance: RANITIDINE
  13. ATENOLOL. [Concomitant]
     Active Substance: ATENOLOL
  14. VITAMIN D [Concomitant]
     Active Substance: VITAMIN D NOS

REACTIONS (1)
  - Cerebrovascular accident [None]

NARRATIVE: CASE EVENT DATE: 20200831
